FAERS Safety Report 15132841 (Version 1)
Quarter: 2018Q3

REPORT INFORMATION
  Report Type: Spontaneous
  Country: SE (occurrence: SE)
  Receive Date: 20180712
  Receipt Date: 20180712
  Transmission Date: 20181010
  Serious: Yes (Other)
  Sender: FDA-Public Use
  Company Number: SE-TEVA-2018-SE-922847

PATIENT
  Age: 46 Year
  Sex: Male

DRUGS (8)
  1. BEHEPAN [Suspect]
     Active Substance: HYDROXOCOBALAMIN
     Indication: FATIGUE
     Route: 065
     Dates: end: 2018
  2. NEXIUM HP [Concomitant]
     Active Substance: AMOXICILLIN\CLARITHROMYCIN\ESOMEPRAZOLE
  3. THERALEN [Concomitant]
     Active Substance: TRIMEPRAZINE
  4. VENTOLINE EVOHALER [Concomitant]
     Active Substance: ALBUTEROL SULFATE
  5. ALVEDON FORTE [Concomitant]
  6. TRAMADOL. [Suspect]
     Active Substance: TRAMADOL
     Indication: PAIN
     Route: 065
     Dates: start: 2000
  7. PARAFLEX [Concomitant]
     Active Substance: CHLORZOXAZONE
  8. IMIGRAN [Suspect]
     Active Substance: SUMATRIPTAN SUCCINATE
     Indication: MIGRAINE
     Route: 065

REACTIONS (4)
  - Drug abuse [Not Recovered/Not Resolved]
  - Headache [Not Recovered/Not Resolved]
  - Rash [Not Recovered/Not Resolved]
  - Libido decreased [Not Recovered/Not Resolved]

NARRATIVE: CASE EVENT DATE: 20130826
